FAERS Safety Report 19455662 (Version 1)
Quarter: 2021Q2

REPORT INFORMATION
  Report Type: Spontaneous
  Country: US (occurrence: US)
  Receive Date: 20210623
  Receipt Date: 20210623
  Transmission Date: 20210717
  Serious: Yes (Life-Threatening, Disabling)
  Sender: FDA-Public Use
  Company Number: None

PATIENT
  Age: 46 Year
  Sex: Male
  Weight: 90 kg

DRUGS (20)
  1. HYDROCODONE?ACETAMINOPHEN 5?325MG [Suspect]
     Active Substance: ACETAMINOPHEN\HYDROCODONE BITARTRATE
     Indication: ANKLE BRACHIAL INDEX
     Dosage: ?          QUANTITY:120 TABLET(S);?
     Route: 048
     Dates: start: 20180611, end: 20210623
  2. CANE [Concomitant]
  3. PRESCRIPTON KNEE BRACES [Concomitant]
  4. LISINOPRIL. [Concomitant]
     Active Substance: LISINOPRIL
  5. CYCLOBENZAPRINE. [Concomitant]
     Active Substance: CYCLOBENZAPRINE
  6. NORCO [Concomitant]
     Active Substance: ACETAMINOPHEN\HYDROCODONE BITARTRATE
  7. LIDOCAINE. [Concomitant]
     Active Substance: LIDOCAINE
  8. PAIN CREAM [Concomitant]
  9. ADDERALL [Concomitant]
     Active Substance: AMPHETAMINE ASPARTATE\AMPHETAMINE SULFATE\DEXTROAMPHETAMINE SACCHARATE\DEXTROAMPHETAMINE SULFATE
  10. EXITIMBE [Concomitant]
  11. WALKER [Concomitant]
  12. PRESCRIPTION COMPRESSION BODY ATTIRE [Concomitant]
  13. GABAPENTIN. [Concomitant]
     Active Substance: GABAPENTIN
  14. OMEPRAZOLE. [Concomitant]
     Active Substance: OMEPRAZOLE
  15. LEVOTHAROXIN [Concomitant]
  16. CITALOPRAM [Concomitant]
     Active Substance: CITALOPRAM HYDROBROMIDE
  17. PRESRIPTION PROFESSIONAL BACK BRACE [Concomitant]
  18. DIAZEPAM. [Concomitant]
     Active Substance: DIAZEPAM
  19. DICLOSENAC SODIUM [Concomitant]
  20. MEN^S MULTIVITAMINS [Concomitant]

REACTIONS (2)
  - Drug withdrawal syndrome [None]
  - Therapy cessation [None]

NARRATIVE: CASE EVENT DATE: 20210623
